FAERS Safety Report 4723909-8 (Version None)
Quarter: 2005Q3

REPORT INFORMATION
  Report Type: 
  Country: None (occurrence: None)
  Receive Date: 20050722
  Receipt Date: 20050711
  Transmission Date: 20060218
  Serious: Yes (Life-Threatening, Hospitalization, Other)
  Sender: FDA-Public Use
  Company Number: 2005027347

PATIENT
  Age: 65 Year
  Sex: Female

DRUGS (8)
  1. GEODON [Suspect]
     Dosage: 140 MG (2 IN 1 D), ORAL
     Route: 048
  2. ASPIRIN [Concomitant]
  3. DEPAKOTE [Concomitant]
  4. PREMARIN [Concomitant]
  5. HABITROL [Concomitant]
  6. SYNTHROID [Concomitant]
  7. VALIUM [Concomitant]
  8. VITAMIN B6 (VITAMIN B6) [Concomitant]

REACTIONS (28)
  - ANAEMIA [None]
  - ANGIOPATHY [None]
  - ARRHYTHMIA [None]
  - BRADYCARDIA [None]
  - CARDIAC STRESS TEST ABNORMAL [None]
  - CEREBROVASCULAR ACCIDENT [None]
  - CORONARY ARTERY OCCLUSION [None]
  - DEPRESSION [None]
  - ELECTROCARDIOGRAM DELTA WAVES ABNORMAL [None]
  - ELECTROCARDIOGRAM POOR R-WAVE PROGRESSION [None]
  - ELECTROCARDIOGRAM QT CORRECTED INTERVAL PROLONGED [None]
  - ELECTROCARDIOGRAM QT PROLONGED [None]
  - ELECTROCARDIOGRAM ST SEGMENT ABNORMAL [None]
  - ELECTROCARDIOGRAM T WAVE INVERSION [None]
  - FEMORAL ARTERIAL STENOSIS [None]
  - HEART RATE INCREASED [None]
  - HYPOAESTHESIA [None]
  - INTERVERTEBRAL DISC DEGENERATION [None]
  - MANIA [None]
  - MYOCARDIAL INFARCTION [None]
  - MYOCARDIAL ISCHAEMIA [None]
  - OSTEOARTHRITIS [None]
  - PARAESTHESIA [None]
  - POST PROCEDURAL COMPLICATION [None]
  - PSYCHOTIC DISORDER [None]
  - SINUS BRADYCARDIA [None]
  - TORSADE DE POINTES [None]
  - VENTRICULAR TACHYCARDIA [None]
